FAERS Safety Report 4679276-1 (Version None)
Quarter: 2005Q2

REPORT INFORMATION
  Report Type: 
  Country: None (occurrence: None)
  Receive Date: 20050531
  Receipt Date: 20050519
  Transmission Date: 20051028
  Serious: Yes (Hospitalization)
  Sender: FDA-Public Use
  Company Number: BRO-008586

PATIENT
  Age: 54 Year
  Sex: Male

DRUGS (1)
  1. IOPAMIDOL-300 [Suspect]
     Indication: COMPUTERISED TOMOGRAM ABDOMEN
     Dosage: 100 ML IV
     Route: 042
     Dates: start: 20050418, end: 20050418

REACTIONS (2)
  - ERYTHEMA [None]
  - GASTROENTERITIS [None]
